FAERS Safety Report 4589257-4 (Version None)
Quarter: 2005Q1

REPORT INFORMATION
  Report Type: 
  Country: None (occurrence: None)
  Receive Date: 20050217
  Receipt Date: 20050217
  Transmission Date: 20050727
  Serious: Yes (Life-Threatening, Hospitalization)
  Sender: FDA-Public Use
  Company Number: None

PATIENT
  Age: 39 Year
  Sex: Female
  Weight: 60 kg

DRUGS (6)
  1. ZELNORM [Suspect]
     Indication: CONSTIPATION
  2. ZOLPIDEM TARTRATE [Concomitant]
  3. XANAX [Concomitant]
  4. PROTONIX [Concomitant]
  5. NORVASC [Concomitant]
  6. LISPRO INSULIN [Concomitant]

REACTIONS (2)
  - ATRIOVENTRICULAR BLOCK [None]
  - HYPOTENSION [None]
